FAERS Safety Report 4952407-1 (Version None)
Quarter: 2006Q1

REPORT INFORMATION
  Report Type: 
  Country: None (occurrence: None)
  Receive Date: 20060320
  Receipt Date: 20060308
  Transmission Date: 20060701
  Serious: No
  Sender: FDA-Public Use
  Company Number: HQWYE101502MAR06

PATIENT
  Sex: Male

DRUGS (1)
  1. EFFEXOR XR [Suspect]
     Indication: DEPRESSION
     Dosage: 150 MG 1X PER 1 DAY, ORAL
     Route: 048
     Dates: start: 20050601, end: 20060228

REACTIONS (16)
  - APATHY [None]
  - CONFUSIONAL STATE [None]
  - DARK CIRCLES UNDER EYES [None]
  - DISTURBANCE IN ATTENTION [None]
  - DRUG WITHDRAWAL SYNDROME [None]
  - FEELING ABNORMAL [None]
  - ILLUSION [None]
  - IMPAIRED WORK ABILITY [None]
  - LAZINESS [None]
  - LIBIDO DECREASED [None]
  - MENTAL IMPAIRMENT [None]
  - NIGHTMARE [None]
  - PARAESTHESIA [None]
  - RASH [None]
  - SUICIDAL IDEATION [None]
  - TINNITUS [None]
